FAERS Safety Report 5418989-0 (Version None)
Quarter: 2007Q3

REPORT INFORMATION
  Report Type: 
  Country: None (occurrence: None)
  Receive Date: 20070817
  Receipt Date: 20070808
  Transmission Date: 20080115
  Serious: Yes (Other)
  Sender: FDA-Public Use
  Company Number: US-PFIZER INC-2007066298

PATIENT

DRUGS (1)
  1. CHANTIX [Suspect]

REACTIONS (1)
  - PSYCHOTIC DISORDER [None]
